FAERS Safety Report 5608947-5 (Version None)
Quarter: 2008Q1

REPORT INFORMATION
  Report Type: 
  Country: None (occurrence: None)
  Receive Date: 20080129
  Receipt Date: 20080129
  Transmission Date: 20080703
  Serious: Yes (Other)
  Sender: FDA-Public Use
  Company Number: None

PATIENT
  Age: 17 Year
  Sex: Female

DRUGS (1)
  1. ENBREL [Suspect]
     Indication: ANKYLOSING SPONDYLITIS
     Dosage: 25MG  2 TIMES WEEKLY  SQ
     Route: 058
     Dates: start: 20080111, end: 20080127

REACTIONS (2)
  - EYE PAIN [None]
  - PHOTOPHOBIA [None]
